FAERS Safety Report 7963926-8 (Version None)
Quarter: 2011Q4

REPORT INFORMATION
  Report Type: 
  Country: None (occurrence: None)
  Receive Date: 20111208
  Receipt Date: 20111129
  Transmission Date: 20120403
  Serious: Yes (Life-Threatening, Hospitalization, Other)
  Sender: FDA-Public Use
  Company Number: US-JNJFOC-20110106989

PATIENT
  Sex: Female
  Weight: 72.58 kg

DRUGS (12)
  1. LEVAQUIN [Suspect]
     Indication: PRODUCT USED FOR UNKNOWN INDICATION
     Route: 048
     Dates: start: 20110113
  2. FISH OIL [Concomitant]
     Dosage: 1 CAPSULE EVERY OTHER DAY
     Route: 048
  3. LEVAQUIN [Suspect]
     Route: 048
     Dates: start: 20110112
  4. METRONIDAZOLE [Suspect]
     Indication: PRODUCT USED FOR UNKNOWN INDICATION
     Route: 042
     Dates: start: 20110113
  5. SYNTHROID [Concomitant]
     Indication: THYROID DISORDER
     Route: 048
  6. B VITAMIN COMPLEX [Concomitant]
     Dosage: 1 TABLET
     Route: 048
  7. CHLOR-TRIMETON [Concomitant]
     Dosage: 1 TABLET TWICE DAILYAS NEEDED
     Route: 048
  8. LEVAQUIN [Suspect]
     Route: 042
     Dates: start: 20110112
  9. LEVAQUIN [Suspect]
     Route: 048
     Dates: start: 20110114, end: 20110116
  10. BIOTIN [Concomitant]
     Dosage: EVERY OTHER DAY
     Route: 048
  11. CYANOCOBALAMIN [Concomitant]
     Dosage: 1 TABLET DAILY
     Route: 048
  12. NAPROXEN (ALEVE) [Concomitant]
     Dosage: 1 CAPSULE EVERY 12 HOURS AS NEEDED
     Route: 048

REACTIONS (17)
  - HYPOAESTHESIA [None]
  - ARTHRALGIA [None]
  - ANAPHYLACTIC SHOCK [None]
  - MALAISE [None]
  - CHILLS [None]
  - DRUG INTOLERANCE [None]
  - TREMOR [None]
  - PYREXIA [None]
  - COLITIS ISCHAEMIC [None]
  - PSEUDOMEMBRANOUS COLITIS [None]
  - BLOOD PRESSURE DECREASED [None]
  - INSOMNIA [None]
  - DIZZINESS [None]
  - BACK PAIN [None]
  - HALLUCINATION [None]
  - HEART RATE INCREASED [None]
  - NIGHT SWEATS [None]
